FAERS Safety Report 13986358 (Version 1)
Quarter: 2017Q3

REPORT INFORMATION
  Report Type: Spontaneous
  Country: US (occurrence: None)
  Receive Date: 20170919
  Receipt Date: 20170919
  Transmission Date: 20171128
  Serious: No
  Sender: FDA-Public Use
  Company Number: None

PATIENT
  Age: 76 Year
  Sex: Female

DRUGS (1)
  1. NINLARO [Suspect]
     Active Substance: IXAZOMIB
     Indication: PLASMA CELL MYELOMA
     Dosage: 4MG DAYS 1,8?AND 15 PO
     Route: 048
     Dates: start: 20160715, end: 20170919

REACTIONS (1)
  - Platelet count abnormal [None]

NARRATIVE: CASE EVENT DATE: 20170919
